FAERS Safety Report 9572030 (Version 1)
Quarter: 2013Q3

REPORT INFORMATION
  Report Type: Spontaneous
  Country: GB (occurrence: None)
  Receive Date: 20130927
  Receipt Date: 20130927
  Transmission Date: 20140515
  Serious: Yes (Other)
  Sender: FDA-Public Use
  Company Number: GER/UKI/13/0034666

PATIENT
  Age: 65 Year
  Sex: Female
  Weight: 72 kg

DRUGS (17)
  1. ATORVASTATIN [Suspect]
     Indication: PRODUCT USED FOR UNKNOWN INDICATION
     Dates: start: 20130809
  2. AMITRIPTYLINE ( AMITRIPTYLINE HYDROCHLORIDE) [Concomitant]
  3. BETAMETHASONE ( BETAMETHASONE) [Concomitant]
  4. DIAZEPAM (DIAZEPAM) [Concomitant]
  5. FERROUS SULPHATE ( FERROUS SULFATE) [Concomitant]
  6. FLUCLOXACILLIN ( FLUCLOXACILLIN) [Concomitant]
  7. FUSIDIC ACID ( FUSIDIC ACID) [Concomitant]
  8. GABAPENTIN ( GABAPENTIN) [Concomitant]
  9. HYDROXOCOBALAMIN ( HYDROXOCOBALAMIN) [Concomitant]
  10. LOSARTAN ( LOSARTAN) [Concomitant]
  11. OMEPRAZOLE ( OMEPRAZOLE) [Concomitant]
  12. PARACETAMOL ( PARACETAMOL) [Concomitant]
  13. PRAVASTATIN (PRAVASTATIN) [Concomitant]
  14. PREGABALIN ( PREGABALIN) [Concomitant]
  15. SIMVASTATIN ( SIMVASTATIN) [Concomitant]
  16. TRAMADOL ( TRAMADOL) [Concomitant]
  17. WARFARIN ( WARFARIN SODIUM) [Concomitant]

REACTIONS (2)
  - Myalgia [None]
  - Abdominal pain upper [None]
